FAERS Safety Report 5144604-X (Version None)
Quarter: 2006Q4

REPORT INFORMATION
  Report Type: 
  Country: None (occurrence: None)
  Receive Date: 20061031
  Receipt Date: 20061016
  Transmission Date: 20070319
  Serious: Yes (Other)
  Sender: FDA-Public Use
  Company Number: 2006RR-04119

PATIENT
  Age: 7 Year
  Weight: 20.3 kg

DRUGS (2)
  1. IBUPROFEN [Suspect]
     Indication: PROCEDURAL PAIN
     Dosage: 200 MG, TID,
     Dates: start: 20060809, end: 20060817
  2. ACETAMINOPHEN [Concomitant]

REACTIONS (7)
  - BLOOD UREA INCREASED [None]
  - GASTROINTESTINAL HAEMORRHAGE [None]
  - HAEMATEMESIS [None]
  - HAEMOGLOBIN DECREASED [None]
  - OVERDOSE [None]
  - POST PROCEDURAL HAEMORRHAGE [None]
  - WEIGHT BELOW NORMAL [None]
